FAERS Safety Report 9979132 (Version 1)
Quarter: 2014Q1

REPORT INFORMATION
  Report Type: Report from Study
  Country: US (occurrence: US)
  Receive Date: 20140306
  Receipt Date: 20140306
  Transmission Date: 20141002
  Serious: No
  Sender: FDA-Public Use
  Company Number: US-ABBVIE-13P-163-1173821-00

PATIENT
  Age: 20 Year
  Sex: Female
  Weight: 54.48 kg

DRUGS (5)
  1. HUMIRA [Suspect]
     Indication: CROHN^S DISEASE
     Dosage: 4 INJECTIONS
     Route: 058
     Dates: start: 201306, end: 201306
  2. HUMIRA [Suspect]
     Dosage: 2 INJECTIONS
     Route: 058
     Dates: start: 201306, end: 201306
  3. HUMIRA [Suspect]
     Route: 058
     Dates: start: 201307, end: 201310
  4. HUMIRA [Suspect]
     Dosage: 2 INJECTIONS
     Route: 058
     Dates: start: 201310, end: 201310
  5. HUMIRA [Suspect]
     Route: 058
     Dates: start: 201311

REACTIONS (3)
  - Haematochezia [Recovered/Resolved]
  - Drug dose omission [Recovered/Resolved]
  - Abdominal pain [Recovered/Resolved]
